FAERS Safety Report 18396206 (Version 3)
Quarter: 2021Q1

REPORT INFORMATION
  Report Type: Spontaneous
  Country: DE (occurrence: DE)
  Receive Date: 20201019
  Receipt Date: 20210302
  Transmission Date: 20210419
  Serious: Yes (Other)
  Sender: FDA-Public Use
  Company Number: DE-ROCHE-2693549

PATIENT
  Age: 24 Year
  Sex: Female
  Weight: 50 kg

DRUGS (5)
  1. GAZYVARO [Suspect]
     Active Substance: OBINUTUZUMAB
     Indication: RELAPSING MULTIPLE SCLEROSIS
     Dosage: ONCE
     Route: 042
     Dates: start: 201910, end: 201910
  2. OCREVUS [Suspect]
     Active Substance: OCRELIZUMAB
     Indication: MULTIPLE SCLEROSIS
     Route: 042
     Dates: start: 202005
  3. ALEMTUZUMAB [Concomitant]
     Active Substance: ALEMTUZUMAB
     Indication: RELAPSING MULTIPLE SCLEROSIS
  4. VENLAFAXINE [Concomitant]
     Active Substance: VENLAFAXINE HYDROCHLORIDE
     Indication: ANXIETY
  5. VENLAFAXINE [Concomitant]
     Active Substance: VENLAFAXINE HYDROCHLORIDE
     Indication: DEPRESSION
     Route: 048
     Dates: start: 201910

REACTIONS (5)
  - Magnetic resonance imaging abnormal [Unknown]
  - Off label use [Unknown]
  - Intentional product use issue [Unknown]
  - Lymphopenia [Unknown]
  - Relapsing multiple sclerosis [Unknown]

NARRATIVE: CASE EVENT DATE: 202006
